FAERS Safety Report 23540360 (Version 1)
Quarter: 2024Q1

REPORT INFORMATION
  Report Type: Spontaneous
  Country: BR (occurrence: BR)
  Receive Date: 20240219
  Receipt Date: 20240219
  Transmission Date: 20240409
  Serious: Yes (Other)
  Sender: FDA-Public Use
  Company Number: BR-ORGANON-O2402BRA001140

PATIENT
  Sex: Female
  Weight: 90 kg

DRUGS (1)
  1. ZETIA [Suspect]
     Active Substance: EZETIMIBE
     Indication: Blood cholesterol
     Dosage: TOOK TABLET AT NIGHT-EVENING.
     Route: 048
     Dates: start: 20240202, end: 20240203

REACTIONS (19)
  - Suicidal ideation [Unknown]
  - Near death experience [Unknown]
  - Syncope [Unknown]
  - Crying [Unknown]
  - Gait inability [Unknown]
  - Illness [Unknown]
  - Aphonia [Unknown]
  - Somnolence [Unknown]
  - Emotional distress [Unknown]
  - Malaise [Unknown]
  - Pain [Unknown]
  - Dyspnoea [Unknown]
  - Dry mouth [Unknown]
  - Depression [Unknown]
  - Arthralgia [Unknown]
  - Abdominal pain [Unknown]
  - Fatigue [Unknown]
  - Dizziness [Unknown]
  - Paraesthesia [Unknown]

NARRATIVE: CASE EVENT DATE: 20240203
